FAERS Safety Report 14511739 (Version 1)
Quarter: 2018Q1

REPORT INFORMATION
  Report Type: Spontaneous
  Country: US (occurrence: US)
  Receive Date: 20180209
  Receipt Date: 20180209
  Transmission Date: 20180509
  Serious: Yes (Life-Threatening, Hospitalization, Disabling, Other)
  Sender: FDA-Public Use
  Company Number: None

PATIENT
  Age: 55 Year
  Sex: Female
  Weight: 69.85 kg

DRUGS (7)
  1. NORTRIPTYLINE [Suspect]
     Active Substance: NORTRIPTYLINE
     Indication: PAIN IN EXTREMITY
     Route: 048
     Dates: start: 20171130, end: 20171220
  2. AMLODIPINE BESYLATE. [Concomitant]
     Active Substance: AMLODIPINE BESYLATE
  3. AMITRIPTYLINE [Suspect]
     Active Substance: AMITRIPTYLINE
     Indication: BACK PAIN
     Route: 048
     Dates: start: 20171130, end: 20171220
  4. HYDROCHLOROTHIAZIDE. [Concomitant]
     Active Substance: HYDROCHLOROTHIAZIDE
  5. AMITRIPTYLINE [Suspect]
     Active Substance: AMITRIPTYLINE
     Indication: PAIN IN EXTREMITY
     Route: 048
     Dates: start: 20171130, end: 20171220
  6. NORTRIPTYLINE [Suspect]
     Active Substance: NORTRIPTYLINE
     Indication: BACK PAIN
     Route: 048
     Dates: start: 20171130, end: 20171220
  7. MELATONIN [Concomitant]
     Active Substance: MELATONIN

REACTIONS (8)
  - Drug ineffective [None]
  - Blood creatine abnormal [None]
  - Headache [None]
  - Tremor [None]
  - Dyspnoea [None]
  - Ileus [None]
  - Flushing [None]
  - Blood carbon monoxide decreased [None]

NARRATIVE: CASE EVENT DATE: 20171130
